FAERS Safety Report 8439077-5 (Version None)
Quarter: 2012Q2

REPORT INFORMATION
  Report Type: 
  Country: None (occurrence: None)
  Receive Date: 20120615
  Receipt Date: 20120606
  Transmission Date: 20120825
  Serious: Yes (Hospitalization, Other)
  Sender: FDA-Public Use
  Company Number: US-JNJFOC-20120508239

PATIENT
  Sex: Female
  Weight: 47.17 kg

DRUGS (8)
  1. DURAGESIC-100 [Suspect]
     Indication: FIBROMYALGIA
     Route: 062
     Dates: start: 20090101
  2. KLOR-CON [Concomitant]
     Indication: NUTRITIONAL SUPPORT
     Route: 048
  3. TIAZAC [Concomitant]
     Indication: CARDIAC DISORDER
     Route: 048
  4. SKELAXIN [Concomitant]
     Indication: MUSCLE RELAXANT THERAPY
     Route: 048
  5. HYZAAR [Concomitant]
     Indication: BLOOD PRESSURE
     Dosage: 50/1.5MG
     Route: 048
  6. DURAGESIC-100 [Suspect]
     Route: 062
     Dates: start: 20090101
  7. DURAGESIC-100 [Suspect]
     Indication: PAIN
     Route: 062
     Dates: end: 20090101
  8. TOPROL-XL [Concomitant]
     Indication: BLOOD PRESSURE
     Dosage: 25MG/AT NIGHT
     Route: 065

REACTIONS (16)
  - SYNCOPE [None]
  - BLOOD PRESSURE FLUCTUATION [None]
  - FATIGUE [None]
  - DIPLOPIA [None]
  - RIB FRACTURE [None]
  - DRUG ADMINISTERED AT INAPPROPRIATE SITE [None]
  - INSOMNIA [None]
  - ADVERSE EVENT [None]
  - HERPES ZOSTER [None]
  - PRODUCT QUALITY ISSUE [None]
  - LOSS OF CONSCIOUSNESS [None]
  - FALL [None]
  - WRONG TECHNIQUE IN DRUG USAGE PROCESS [None]
  - HYPERHIDROSIS [None]
  - IMPAIRED HEALING [None]
  - DERMATITIS CONTACT [None]
